FAERS Safety Report 4628915-X (Version None)
Quarter: 2005Q1

REPORT INFORMATION
  Report Type: 
  Country: None (occurrence: None)
  Receive Date: 20050107
  Receipt Date: 20041110
  Transmission Date: 20050727
  Serious: No
  Sender: FDA-Public Use
  Company Number: 230219M04USA

PATIENT

DRUGS (2)
  1. REBIF [Suspect]
     Indication: MULTIPLE SCLEROSIS
  2. NEURONTIN [Suspect]

REACTIONS (3)
  - CIRCULATORY COLLAPSE [None]
  - FALL [None]
  - SYNCOPE [None]
